FAERS Safety Report 25007331 (Version 2)
Quarter: 2025Q1

REPORT INFORMATION
  Report Type: Report from Study
  Country: US (occurrence: US)
  Receive Date: 20250225
  Receipt Date: 20250321
  Transmission Date: 20250408
  Serious: Yes (Other)
  Sender: ABBVIE
  Company Number: US-ABBVIE-6118387

PATIENT
  Age: 66 Year
  Sex: Female

DRUGS (3)
  1. RINVOQ [Suspect]
     Active Substance: UPADACITINIB
     Indication: Rheumatoid arthritis
     Route: 048
     Dates: start: 20210302, end: 202502
  2. RINVOQ [Suspect]
     Active Substance: UPADACITINIB
     Indication: Rheumatoid arthritis
     Route: 048
     Dates: start: 202503
  3. PREDNISONE [Suspect]
     Active Substance: PREDNISONE
     Indication: Product used for unknown indication
     Route: 065

REACTIONS (9)
  - Shoulder fracture [Recovering/Resolving]
  - Peripheral swelling [Unknown]
  - Rheumatoid arthritis [Recovering/Resolving]
  - Therapeutic product effect decreased [Unknown]
  - Rotator cuff syndrome [Recovered/Resolved]
  - Product storage error [Unknown]
  - Pain in extremity [Unknown]
  - Fall [Recovered/Resolved]
  - Pain [Unknown]

NARRATIVE: CASE EVENT DATE: 20240901
